FAERS Safety Report 9948608 (Version 2)
Quarter: 2014Q1

REPORT INFORMATION
  Report Type: Spontaneous
  Country: US (occurrence: US)
  Receive Date: 20140304
  Receipt Date: 20140304
  Transmission Date: 20141002
  Serious: Yes (Hospitalization, Other)
  Sender: FDA-Public Use
  Company Number: US-AMGEN-USASP2014002355

PATIENT
  Age: 53 Year
  Sex: Female

DRUGS (10)
  1. ENBREL [Suspect]
     Indication: PSORIASIS
     Dosage: 50 MG, QWK
     Route: 065
     Dates: start: 20130729, end: 201312
  2. HALOG [Concomitant]
     Indication: PSORIASIS
     Dosage: UNK UNK, BID
  3. ALLEGRA [Concomitant]
     Indication: PSORIASIS
     Dosage: 180 MG, UNK
  4. ATARAX                             /00058401/ [Concomitant]
     Indication: PSORIASIS
     Dosage: 25 MG, UNK
  5. DERMA SMOOTH FS [Concomitant]
     Indication: PSORIASIS
     Dosage: UNK
  6. WESTCORT [Concomitant]
     Indication: PSORIASIS
     Dosage: UNK
  7. CLOBETASOL [Concomitant]
     Indication: PSORIASIS
     Dosage: UNK
  8. TOPICORT                           /00028604/ [Concomitant]
     Dosage: 0.25 UNK, UNK
  9. TEMOVATE [Concomitant]
     Dosage: UNK
  10. LAC-HYDRIN [Concomitant]
     Dosage: UNK

REACTIONS (10)
  - Apparent death [Recovered/Resolved]
  - Type 2 diabetes mellitus [Not Recovered/Not Resolved]
  - Renal impairment [Recovered/Resolved]
  - Cardiac failure congestive [Not Recovered/Not Resolved]
  - Pneumonia [Not Recovered/Not Resolved]
  - Lung infection [Unknown]
  - Breath sounds abnormal [Not Recovered/Not Resolved]
  - Vision blurred [Not Recovered/Not Resolved]
  - Joint swelling [Not Recovered/Not Resolved]
  - Malaise [Not Recovered/Not Resolved]
